FAERS Safety Report 19111220 (Version 1)
Quarter: 2021Q2

REPORT INFORMATION
  Report Type: Spontaneous
  Country: US (occurrence: US)
  Receive Date: 20210408
  Receipt Date: 20210408
  Transmission Date: 20210717
  Serious: No
  Sender: FDA-Public Use
  Company Number: US-XERIS PHARMACEUTICALS-2021XER00003

PATIENT
  Sex: Male
  Weight: 77.1 kg

DRUGS (5)
  1. GLUCAGON (LILLY) [Suspect]
     Active Substance: GLUCAGON
     Indication: BLOOD GLUCOSE DECREASED
     Dosage: UNK
  2. WELLBUTRIN [Concomitant]
     Active Substance: BUPROPION HYDROCHLORIDE
  3. GVOKE [Suspect]
     Active Substance: GLUCAGON
     Indication: BLOOD GLUCOSE DECREASED
     Dosage: UNK UNK, ONCE INJECTED IN RIGHT THIGH
  4. OMEPRAZOLE. [Concomitant]
     Active Substance: OMEPRAZOLE
  5. UNSPECIFIED ACNE MEDICATIONS [Concomitant]
     Dosage: UNK, AS NEEDED

REACTIONS (2)
  - Extra dose administered [Recovered/Resolved]
  - Injection site extravasation [Recovered/Resolved]
